FAERS Safety Report 6091242-0 (Version None)
Quarter: 2009Q1

REPORT INFORMATION
  Report Type: 
  Country: None (occurrence: None)
  Receive Date: 20090220
  Receipt Date: 20090220
  Transmission Date: 20090719
  Serious: No
  Sender: FDA-Public Use
  Company Number: None

PATIENT
  Age: 68 Year
  Sex: Female
  Weight: 61.6892 kg

DRUGS (5)
  1. FAMOTIDINE [Suspect]
     Indication: DYSPEPSIA
     Dosage: 1 TABLET TWICE DAILY PO
     Route: 048
     Dates: start: 20090208, end: 20090218
  2. MORPHINE [Concomitant]
  3. SALINE DRIP [Concomitant]
  4. ANTI-CLOTTING INSTRUMUSCULAR INJECTION [Concomitant]
  5. HYDROCODONE BITARTRATE + ACETAMINOPHEN [Concomitant]

REACTIONS (6)
  - BLOOD PRESSURE INCREASED [None]
  - CONSTIPATION [None]
  - GASTROINTESTINAL PAIN [None]
  - NO THERAPEUTIC RESPONSE [None]
  - PANCREATITIS ACUTE [None]
  - WRONG DRUG ADMINISTERED [None]
